FAERS Safety Report 5000297-3 (Version None)
Quarter: 2006Q2

REPORT INFORMATION
  Report Type: 
  Country: None (occurrence: None)
  Receive Date: 20060511
  Receipt Date: 20051003
  Transmission Date: 20061013
  Serious: Yes (Hospitalization)
  Sender: FDA-Public Use
  Company Number: US-MERCK-0510USA02639

PATIENT
  Age: 73 Year
  Sex: Male
  Weight: 125 kg

DRUGS (4)
  1. VIOXX [Suspect]
     Indication: PAIN MANAGEMENT
     Route: 048
     Dates: start: 20010409, end: 20040901
  2. SYNTHROID [Concomitant]
     Route: 065
  3. VASERETIC [Concomitant]
     Route: 065
  4. ULTRAM [Concomitant]
     Route: 065

REACTIONS (10)
  - ARRHYTHMIA [None]
  - BALANOPOSTHITIS [None]
  - BRAIN STEM THROMBOSIS [None]
  - HAEMORRHOIDS [None]
  - INTERVERTEBRAL DISC DISORDER [None]
  - INTRACRANIAL ANEURYSM [None]
  - ISCHAEMIC STROKE [None]
  - PHIMOSIS [None]
  - SEXUAL DYSFUNCTION [None]
  - URETHRAL MEATUS STENOSIS [None]
